FAERS Safety Report 9343972 (Version 1)
Quarter: 2013Q2

REPORT INFORMATION
  Report Type: Spontaneous
  Country: RU (occurrence: RU)
  Receive Date: 20130612
  Receipt Date: 20130612
  Transmission Date: 20140414
  Serious: Yes (Other)
  Sender: FDA-Public Use
  Company Number: PHHY2013RU059435

PATIENT
  Age: 36 Year
  Sex: 0

DRUGS (1)
  1. GILENYA [Suspect]
     Dosage: 0.5 MG, QD
     Route: 048

REACTIONS (2)
  - Supraventricular tachycardia [Unknown]
  - Supraventricular extrasystoles [Unknown]
